FAERS Safety Report 14584263 (Version 1)
Quarter: 2018Q1

REPORT INFORMATION
  Report Type: Spontaneous
  Country: CZ (occurrence: CZ)
  Receive Date: 20180228
  Receipt Date: 20180228
  Transmission Date: 20180509
  Serious: Yes (Hospitalization)
  Sender: FDA-Public Use
  Company Number: CZ-B.I. PHARMACEUTICALS,INC./RIDGEFIELD-2018-BI-010131

PATIENT
  Age: 81 Year
  Sex: Female

DRUGS (1)
  1. PRADAXA [Suspect]
     Active Substance: DABIGATRAN ETEXILATE MESYLATE
     Indication: PRODUCT USED FOR UNKNOWN INDICATION
     Route: 048

REACTIONS (2)
  - Fall [Recovering/Resolving]
  - Subdural haematoma [Recovering/Resolving]

NARRATIVE: CASE EVENT DATE: 20180211
